FAERS Safety Report 9825492 (Version 1)
Quarter: 2013Q4

REPORT INFORMATION
  Report Type: Spontaneous
  Country: US (occurrence: None)
  Receive Date: 20131028
  Receipt Date: 20131028
  Transmission Date: 20140711
  Serious: No
  Sender: FDA-Public Use
  Company Number: 2013US002415

PATIENT
  Age: 56 Year
  Sex: Male

DRUGS (3)
  1. ICLUSIG [Suspect]
     Indication: CHRONIC MYELOID LEUKAEMIA
     Route: 048
  2. OXYCODONE (OXYCODONE) [Concomitant]
  3. VALIUM (DIAZEPAM) [Concomitant]

REACTIONS (2)
  - Thyroid disorder [None]
  - Disease progression [None]
